FAERS Safety Report 15632120 (Version 1)
Quarter: 2018Q4

REPORT INFORMATION
  Report Type: Spontaneous
  Country: US (occurrence: US)
  Receive Date: 20181119
  Receipt Date: 20181119
  Transmission Date: 20190205
  Serious: Yes (Other)
  Sender: FDA-Public Use
  Company Number: US-PROCTER+GAMBLE-GS18124543

PATIENT
  Age: 65 Year
  Sex: Female

DRUGS (1)
  1. VICKS DAYQUIL SEVERE COLD AND FLU [Suspect]
     Active Substance: ACETAMINOPHEN\DEXTROMETHORPHAN HYDROBROMIDE\GUAIFENESIN\PHENYLEPHRINE HYDROCHLORIDE
     Indication: INFLUENZA
     Dosage: 1 CAPSUL
     Route: 048

REACTIONS (8)
  - Pharyngeal injury [Recovered/Resolved]
  - Exposure via ingestion [Unknown]
  - Accidental exposure to product packaging [Unknown]
  - Throat irritation [Recovered/Resolved]
  - Dyspnoea [Recovered/Resolved]
  - Choking [Recovered/Resolved]
  - Oropharyngeal pain [Recovered/Resolved]
  - Product packaging issue [Unknown]
